FAERS Safety Report 7235830-4 (Version None)
Quarter: 2011Q1

REPORT INFORMATION
  Report Type: 
  Country: None (occurrence: None)
  Receive Date: 20110120
  Receipt Date: 20110106
  Transmission Date: 20110831
  Serious: Yes (Other)
  Sender: FDA-Public Use
  Company Number: US-ROCHE-698068

PATIENT
  Sex: Male
  Weight: 83.9 kg

DRUGS (8)
  1. AMNESTEEM [Suspect]
     Dosage: 40 MG ALTERNATING WITH 80 MG EVERY OTHER DAY, INCREASE TO 40 MG BID AS TOLERATED.
     Route: 048
     Dates: start: 20050317, end: 20050601
  2. KEFLEX [Concomitant]
     Dates: start: 20050517
  3. ACCUTANE [Suspect]
     Route: 048
     Dates: start: 20040114, end: 20041001
  4. AMNESTEEM [Suspect]
     Route: 048
     Dates: start: 20040601, end: 20041001
  5. AMNESTEEM [Suspect]
     Dosage: FREQUENCY: BID/ OD FOR ALTERNATE DAYS
     Route: 048
     Dates: start: 20041201
  6. MINOCYCLINE HCL [Concomitant]
     Indication: ACNE
     Route: 048
  7. COTRIM [Concomitant]
     Indication: ACNE
     Route: 048
  8. ACCUTANE [Suspect]
     Route: 048
     Dates: start: 20050414, end: 20050601

REACTIONS (7)
  - INFLAMMATORY BOWEL DISEASE [None]
  - COLITIS ULCERATIVE [None]
  - BLOOD TRIGLYCERIDES INCREASED [None]
  - ASPARTATE AMINOTRANSFERASE INCREASED [None]
  - COLITIS [None]
  - ANXIETY [None]
  - LIP DRY [None]
